FAERS Safety Report 20324053 (Version 2)
Quarter: 2022Q1

REPORT INFORMATION
  Report Type: Spontaneous
  Country: US (occurrence: None)
  Receive Date: 20220111
  Receipt Date: 20220307
  Transmission Date: 20220423
  Serious: Yes (Death)
  Sender: FDA-Public Use
  Company Number: US-ROCHE-2998918

PATIENT
  Age: 65 Year
  Sex: Male

DRUGS (1)
  1. ROZLYTREK [Suspect]
     Active Substance: ENTRECTINIB
     Indication: Product used for unknown indication
     Route: 048
     Dates: start: 20211112

REACTIONS (1)
  - Head and neck cancer [Fatal]

NARRATIVE: CASE EVENT DATE: 20220106
